FAERS Safety Report 4583452-6 (Version None)
Quarter: 2005Q1

REPORT INFORMATION
  Report Type: 
  Country: None (occurrence: None)
  Receive Date: 20050211
  Receipt Date: 20050202
  Transmission Date: 20050727
  Serious: Yes (Other)
  Sender: FDA-Public Use
  Company Number: 2005024946

PATIENT
  Sex: Female

DRUGS (12)
  1. NORPACE [Suspect]
     Indication: ILL-DEFINED DISORDER
     Dosage: ORAL
     Route: 048
  2. MECOBALAMIN (MECOBALAMIN) [Concomitant]
  3. LIMAPROST (LIMAPROST) [Concomitant]
  4. CINAL (ASCORBIC ACID, CALCIUM PANTOTHENATE) [Concomitant]
  5. ACETYLSALICYLIC ACID SRT [Concomitant]
  6. RANITIDINE HYDROCHLORIDE [Concomitant]
  7. LOSARTAN POTASSIUM [Concomitant]
  8. PRAVASTATIN [Concomitant]
  9. CALCIUM CARBONATE (CALCIUM CARBONATE) [Concomitant]
  10. NIFEDIPINE [Concomitant]
  11. STREPTOCOCCUS FAECALIS (STREPTOCOCCUS FAECALIS) [Concomitant]
  12. FUROSEMIDE [Concomitant]

REACTIONS (1)
  - HYPOGLYCAEMIC COMA [None]
